FAERS Safety Report 5381569-X (Version None)
Quarter: 2007Q2

REPORT INFORMATION
  Report Type: 
  Country: None (occurrence: None)
  Receive Date: 20070629
  Receipt Date: 20070427
  Transmission Date: 20071010
  Serious: Yes (Other)
  Sender: FDA-Public Use
  Company Number: 2007034217

PATIENT

DRUGS (3)
  1. ZOLOFT [Suspect]
  2. GEODON [Suspect]
  3. CLONOPIN [Concomitant]

REACTIONS (1)
  - PRIAPISM [None]
